FAERS Safety Report 7299083-3 (Version None)
Quarter: 2011Q1

REPORT INFORMATION
  Report Type: 
  Country: None (occurrence: None)
  Receive Date: 20110217
  Receipt Date: 20110210
  Transmission Date: 20110831
  Serious: Yes (Hospitalization)
  Sender: FDA-Public Use
  Company Number: IT-BRISTOL-MYERS SQUIBB COMPANY-15547854

PATIENT
  Age: 20 Year
  Sex: Female

DRUGS (1)
  1. ABILIFY [Suspect]
     Indication: PERSONALITY DISORDER
     Dosage: 1 DF:1 UNIT/DAY
     Route: 048
     Dates: start: 20060630, end: 20110129

REACTIONS (2)
  - TROPONIN I INCREASED [None]
  - PRESYNCOPE [None]
